FAERS Safety Report 20908517 (Version 3)
Quarter: 2022Q3

REPORT INFORMATION
  Report Type: Spontaneous
  Country: US (occurrence: US)
  Receive Date: 20220603
  Receipt Date: 20220816
  Transmission Date: 20221026
  Serious: No
  Sender: FDA-Public Use
  Company Number: US-BRISTOL-MYERS SQUIBB COMPANY-2022-038154

PATIENT
  Age: 81 Year
  Sex: Female

DRUGS (3)
  1. REVLIMID [Suspect]
     Active Substance: LENALIDOMIDE
     Indication: Plasma cell myeloma
     Dosage: FREQ: DAILY FOR 21 DAYS ON FOLLOWED BY 7 DAYS OFF EVERY 28 DAY CYCLE
     Route: 048
     Dates: start: 20220510
  2. REVLIMID [Suspect]
     Active Substance: LENALIDOMIDE
     Dosage: TAKE 1 CAPSULE BY MOUTH DAILY FOR 21 DAYS ON, THEN 7 DAYS OFF EVERY 28 DAY CYCLE
     Route: 048
  3. REVLIMID [Suspect]
     Active Substance: LENALIDOMIDE
     Dosage: FREQUENCY-TAKE 1 CAPSULE BY MOUTH DAILY FOR 21 DAYS ON FOLLOWED BY 7 DAYS OFF EVERY 28 DAY CYCLE.
     Route: 048
     Dates: start: 20220510

REACTIONS (2)
  - Sinusitis [Recovered/Resolved]
  - Cough [Unknown]
